FAERS Safety Report 7380170-6 (Version None)
Quarter: 2011Q1

REPORT INFORMATION
  Report Type: 
  Country: None (occurrence: None)
  Receive Date: 20110329
  Receipt Date: 20100929
  Transmission Date: 20110831
  Serious: No
  Sender: FDA-Public Use
  Company Number: US-MYLANLABS-2010S1018073

PATIENT
  Age: 34 Year
  Sex: Female

DRUGS (3)
  1. DARVOCET [Concomitant]
  2. ESTRADIOL [Suspect]
     Indication: HORMONE REPLACEMENT THERAPY
     Dosage: CHANGED QW
     Route: 048
     Dates: start: 20100907
  3. LEXAPRO [Concomitant]

REACTIONS (2)
  - APPLICATION SITE VESICLES [None]
  - APPLICATION SITE PRURITUS [None]
